FAERS Safety Report 8417911 (Version 2)
Quarter: 2013Q1

REPORT INFORMATION
  Report Type: Spontaneous
  Country: US (occurrence: US)
  Receive Date: 20120221
  Receipt Date: 20130111
  Transmission Date: 20140127
  Serious: Yes (Hospitalization, Other)
  Sender: FDA-Public Use
  Company Number: US-BAYER-2012-016730

PATIENT
  Age: 28 Year
  Sex: Female

DRUGS (4)
  1. YAZ [Suspect]
     Indication: MENSTRUATION IRREGULAR
  2. YASMIN [Suspect]
  3. OCELLA [Suspect]
  4. GIANVI [Suspect]

REACTIONS (9)
  - Pulmonary embolism [None]
  - Deep vein thrombosis [None]
  - Injury [None]
  - Chest pain [None]
  - Dyspnoea [None]
  - Asthenia [None]
  - Pain [None]
  - Emotional distress [None]
  - Pain [None]
